FAERS Safety Report 4790966-2 (Version None)
Quarter: 2005Q4

REPORT INFORMATION
  Report Type: 
  Country: None (occurrence: None)
  Receive Date: 20051005
  Receipt Date: 20050920
  Transmission Date: 20060501
  Serious: Yes (Death, Other)
  Sender: FDA-Public Use
  Company Number: USA050189378

PATIENT
  Age: 44 Year
  Sex: Female

DRUGS (4)
  1. ZYPREXA [Suspect]
     Dosage: 5 MG/1 DAY
     Dates: start: 20040203
  2. NEURONTIN [Concomitant]
  3. EFFEXOR [Concomitant]
  4. LKEXAPRO (ESCITALOPRAM OXALATE) [Concomitant]

REACTIONS (8)
  - AGITATION [None]
  - CEREBROVASCULAR DISORDER [None]
  - COMA [None]
  - DEPRESSION [None]
  - HAEMORRHAGE INTRACRANIAL [None]
  - HEADACHE [None]
  - INSOMNIA [None]
  - VOMITING [None]
